FAERS Safety Report 24984140 (Version 1)
Quarter: 2025Q1

REPORT INFORMATION
  Report Type: Report from Study
  Country: BR (occurrence: BR)
  Receive Date: 20250219
  Receipt Date: 20250219
  Transmission Date: 20250408
  Serious: Yes (Other)
  Sender: JOHNSON AND JOHNSON
  Company Number: BR-JNJFOC-20250231960

PATIENT
  Age: 8 Decade
  Sex: Male
  Weight: 75 kg

DRUGS (3)
  1. GOLIMUMAB [Suspect]
     Active Substance: GOLIMUMAB
     Indication: Rheumatoid arthritis
     Route: 058
     Dates: start: 202205
  2. GOLIMUMAB [Suspect]
     Active Substance: GOLIMUMAB
  3. GOLIMUMAB [Suspect]
     Active Substance: GOLIMUMAB

REACTIONS (8)
  - Diabetes mellitus [Unknown]
  - Skin cancer [Unknown]
  - Cardiac disorder [Unknown]
  - Rheumatoid arthritis [Unknown]
  - Hypoacusis [Not Recovered/Not Resolved]
  - Ear inflammation [Unknown]
  - Acne [Unknown]
  - Bone lesion [Not Recovered/Not Resolved]
